FAERS Safety Report 10334040 (Version 1)
Quarter: 2014Q3

REPORT INFORMATION
  Report Type: Spontaneous
  Country: US (occurrence: US)
  Receive Date: 20140723
  Receipt Date: 20140723
  Transmission Date: 20150326
  Serious: No
  Sender: FDA-Public Use
  Company Number: US-009507513-1407USA009611

PATIENT
  Sex: Female

DRUGS (1)
  1. NUVARING [Suspect]
     Active Substance: ETHINYL ESTRADIOL\ETONOGESTREL
     Indication: CONTRACEPTION
     Dosage: .015/.12, DOSE/FREQUENCY: UNSPECIFIED
     Route: 067
     Dates: start: 20140717, end: 20140718

REACTIONS (3)
  - No adverse event [Unknown]
  - Incorrect drug administration duration [Unknown]
  - Menstruation normal [Unknown]

NARRATIVE: CASE EVENT DATE: 20140718
